FAERS Safety Report 20935783 (Version 3)
Quarter: 2022Q3

REPORT INFORMATION
  Report Type: Spontaneous
  Country: US (occurrence: None)
  Receive Date: 20220609
  Receipt Date: 20220727
  Transmission Date: 20221027
  Serious: Yes (Hospitalization)
  Sender: FDA-Public Use
  Company Number: 2022A206595

PATIENT
  Age: 16677 Day
  Sex: Female
  Weight: 119.3 kg

DRUGS (1)
  1. TEZSPIRE [Suspect]
     Active Substance: TEZEPELUMAB-EKKO
     Indication: Asthma
     Dosage: 210 MG/1.91 ML ONCE/SINGLE ADMINISTRATION
     Route: 058
     Dates: start: 20220527

REACTIONS (2)
  - Wheezing [Recovered/Resolved]
  - Chest discomfort [Recovered/Resolved]

NARRATIVE: CASE EVENT DATE: 20220527
